FAERS Safety Report 7298174-0 (Version None)
Quarter: 2011Q1

REPORT INFORMATION
  Report Type: 
  Country: None (occurrence: None)
  Receive Date: 20110217
  Receipt Date: 20110203
  Transmission Date: 20110831
  Serious: Yes (Hospitalization)
  Sender: FDA-Public Use
  Company Number: TR-US-EMD SERONO, INC.-7041984

PATIENT
  Age: 38 Year
  Sex: Male

DRUGS (2)
  1. REBIF [Suspect]
     Indication: MULTIPLE SCLEROSIS
     Route: 058
     Dates: start: 20060801
  2. SUPRAFEN [Concomitant]
     Indication: ANALGESIC THERAPY

REACTIONS (9)
  - RESPIRATORY FAILURE [None]
  - MULTI-ORGAN FAILURE [None]
  - DYSPNOEA [None]
  - MULTIPLE SCLEROSIS [None]
  - BLINDNESS [None]
  - INFLUENZA [None]
  - RENAL IMPAIRMENT [None]
  - BODY TEMPERATURE INCREASED [None]
  - SPEECH DISORDER [None]
